FAERS Safety Report 25546830 (Version 2)
Quarter: 2025Q3

REPORT INFORMATION
  Report Type: Spontaneous
  Country: EU (occurrence: EU)
  Receive Date: 20250714
  Receipt Date: 20250728
  Transmission Date: 20251021
  Serious: Yes (Other)
  Sender: ABBVIE
  Company Number: EU-PFIZER INC-PV202500080437

PATIENT

DRUGS (1)
  1. AVIBACTAM\AZTREONAM [Suspect]
     Active Substance: AVIBACTAM\AZTREONAM
     Indication: Sepsis
     Route: 065

REACTIONS (2)
  - Disease recurrence [Unknown]
  - Off label use [Unknown]
